FAERS Safety Report 16290162 (Version 3)
Quarter: 2019Q2

REPORT INFORMATION
  Report Type: Spontaneous
  Country: CH (occurrence: CH)
  Receive Date: 20190509
  Receipt Date: 20190529
  Transmission Date: 20190711
  Serious: Yes (Other)
  Sender: FDA-Public Use
  Company Number: CH-ROCHE-2311741

PATIENT
  Age: 78 Year
  Sex: Male
  Weight: 90 kg

DRUGS (2)
  1. MABTHERA [Suspect]
     Active Substance: RITUXIMAB
     Indication: DIFFUSE LARGE B-CELL LYMPHOMA
     Route: 041
     Dates: start: 201504
  2. CHOPHYTOL [CYNARA] [Suspect]
     Active Substance: HERBALS
     Indication: DIFFUSE LARGE B-CELL LYMPHOMA
     Route: 065
     Dates: start: 201504

REACTIONS (1)
  - Diffuse large B-cell lymphoma recurrent [Not Recovered/Not Resolved]

NARRATIVE: CASE EVENT DATE: 20180202
